FAERS Safety Report 13182120 (Version 4)
Quarter: 2017Q3

REPORT INFORMATION
  Report Type: Spontaneous
  Country: KR (occurrence: KR)
  Receive Date: 20170202
  Receipt Date: 20170802
  Transmission Date: 20171127
  Serious: Yes (Hospitalization, Other)
  Sender: FDA-Public Use
  Company Number: KR-009507513-1701KOR010137

PATIENT
  Age: 48 Year
  Sex: Male
  Weight: 62 kg

DRUGS (22)
  1. DEXAMETHASONA KUKJE [Concomitant]
     Indication: PROPHYLAXIS OF NAUSEA AND VOMITING
     Dosage: 12 MG, QD; (STRENGTH: 5MG/ML)
     Route: 042
     Dates: start: 20161208, end: 20161209
  2. DEXAMETHASONA KUKJE [Concomitant]
     Dosage: 12 MG, QD (STRENGTH: 5MG/ML)
     Route: 042
     Dates: start: 20170124, end: 20170124
  3. ALOXI [Concomitant]
     Active Substance: PALONOSETRON HYDROCHLORIDE
     Indication: PROPHYLAXIS OF NAUSEA AND VOMITING
     Dosage: 1.5 ML, ONCE
     Route: 042
     Dates: start: 20161208, end: 20161208
  4. LASIX [Concomitant]
     Active Substance: FUROSEMIDE
     Indication: PROPHYLAXIS
     Dosage: STRENGTH 20MG/2ML, 20 MG, ONCE
     Route: 042
     Dates: start: 20161208, end: 20161208
  5. EMEND (FOSAPREPITANT DIMEGLUMINE) [Suspect]
     Active Substance: FOSAPREPITANT DIMEGLUMINE
     Indication: PROPHYLAXIS OF NAUSEA AND VOMITING
     Dosage: 150 MG, ONCE
     Route: 042
     Dates: start: 20161116, end: 20161116
  6. EMEND (FOSAPREPITANT DIMEGLUMINE) [Suspect]
     Active Substance: FOSAPREPITANT DIMEGLUMINE
     Dosage: 150 MG, ONCE
     Route: 042
     Dates: start: 20170102, end: 20170102
  7. CISPLAN [Concomitant]
     Active Substance: CISPLATIN
     Dosage: 100 MG, ONCE; CYCLE 3; (STRENGTH 50MG/100ML)
     Route: 042
     Dates: start: 20170102, end: 20170102
  8. EMEND (FOSAPREPITANT DIMEGLUMINE) [Suspect]
     Active Substance: FOSAPREPITANT DIMEGLUMINE
     Dosage: 150 MG, ONCE
     Route: 042
     Dates: start: 20161208, end: 20161208
  9. DEXAMETHASONA YUHANMEDICA [Concomitant]
     Indication: PROPHYLAXIS OF NAUSEA AND VOMITING
     Dosage: 8MG (16 TABLETS), QD
     Route: 048
     Dates: start: 20161209, end: 20161211
  10. XARELTO [Concomitant]
     Active Substance: RIVAROXABAN
     Dosage: 15MG (1 TABLET, QD)
     Route: 048
     Dates: start: 20170124, end: 20170212
  11. MAINTA [Concomitant]
     Indication: CHEMOTHERAPY
     Dosage: 880 MG, ONCE; CYCLE 2
     Route: 042
     Dates: start: 20161208, end: 20161208
  12. DEXAMETHASONA KUKJE [Concomitant]
     Dosage: 8 MG, QD; (STRENGTH: 5MG/ML)
     Route: 042
     Dates: start: 20170102, end: 20170106
  13. ALOXI [Concomitant]
     Active Substance: PALONOSETRON HYDROCHLORIDE
     Dosage: 1.5 ML, ONCE
     Route: 042
     Dates: start: 20170102, end: 20170102
  14. ALOXI [Concomitant]
     Active Substance: PALONOSETRON HYDROCHLORIDE
     Dosage: 1.5 ML, ONCE
     Route: 042
     Dates: start: 20170124, end: 20170124
  15. XARELTO [Concomitant]
     Active Substance: RIVAROXABAN
     Indication: TUMOUR THROMBOSIS
     Dosage: 15MG (1 TABLET, BID)
     Route: 048
     Dates: start: 20161116, end: 20161207
  16. DEXAMETHASONA KUKJE [Concomitant]
     Dosage: 8 MG, QD; (STRENGTH: 5MG/ML)
     Route: 042
     Dates: start: 20170125, end: 20170126
  17. DEXAMETHASONA YUHANMEDICA [Concomitant]
     Dosage: 4MG (8 TABLETS), QD
     Route: 048
     Dates: start: 20170127, end: 20170129
  18. EMEND (FOSAPREPITANT DIMEGLUMINE) [Suspect]
     Active Substance: FOSAPREPITANT DIMEGLUMINE
     Dosage: 150 MG, ONCE
     Route: 042
     Dates: start: 20170124, end: 20170124
  19. LASIX [Concomitant]
     Active Substance: FUROSEMIDE
     Dosage: STRENGTH 20MG/2ML, 20 MG, ONCE
     Route: 042
     Dates: start: 20170102, end: 20170102
  20. LASIX [Concomitant]
     Active Substance: FUROSEMIDE
     Dosage: STRENGTH 20MG/2ML, 20 MG, ONCE
     Route: 042
     Dates: start: 17000124, end: 20170126
  21. DIABEX [Concomitant]
     Active Substance: METFORMIN HYDROCHLORIDE
     Indication: DIABETES MELLITUS
     Dosage: 500MG (1 TABLET, QD)
     Route: 048
     Dates: start: 201611
  22. CISPLAN [Concomitant]
     Active Substance: CISPLATIN
     Indication: CHEMOTHERAPY
     Dosage: 100 MG, ONCE; CYCLE 2; (STRENGTH 50MG/100ML)
     Route: 042
     Dates: start: 20161208, end: 20161208

REACTIONS (4)
  - Dyspnoea [Recovered/Resolved]
  - Rash papular [Recovered/Resolved]
  - Epigastric discomfort [Recovered/Resolved]
  - Malignant pleural effusion [Recovered/Resolved]

NARRATIVE: CASE EVENT DATE: 20161212
